FAERS Safety Report 6719556-9 (Version None)
Quarter: 2010Q2

REPORT INFORMATION
  Report Type: 
  Country: None (occurrence: None)
  Receive Date: 20100510
  Receipt Date: 20100510
  Transmission Date: 20101027
  Serious: No
  Sender: FDA-Public Use
  Company Number: None

PATIENT
  Age: 61 Year
  Sex: Male
  Weight: 107.9561 kg

DRUGS (1)
  1. DORZOLAMIDE HYDROCHLORIDE AND TIMOLOL MALEATE [Suspect]
     Indication: GLAUCOMA
     Dosage: 1 DROP EACH EYE 2 TIMES DAILY INTRAOCULAR
     Route: 031
     Dates: start: 20100410, end: 20100501

REACTIONS (2)
  - BLOOD PRESSURE DECREASED [None]
  - MUSCLE SPASMS [None]
